FAERS Safety Report 7386515-5 (Version None)
Quarter: 2011Q1

REPORT INFORMATION
  Report Type: 
  Country: None (occurrence: None)
  Receive Date: 20110323
  Receipt Date: 20110308
  Transmission Date: 20110831
  Serious: Yes (Hospitalization, Other)
  Sender: FDA-Public Use
  Company Number: 20110190

PATIENT
  Age: 60 Year
  Sex: Female

DRUGS (4)
  1. FLUOXETINE [Concomitant]
  2. BECLAMETHASONE NASAL SPRAY [Concomitant]
  3. METHYLENE BLUE INJECTION, USP (METHYLENE BLUE) 10MG/ML [Suspect]
     Indication: PARATHYROID GLAND OPERATION
     Dosage: 7.5 MG/KG, INTRAVENOUS
  4. ACETAMINOPHEN WITH PROPOXYPHENE HCL TAB [Concomitant]

REACTIONS (11)
  - RESPIRATORY ACIDOSIS [None]
  - HAEMOGLOBIN DECREASED [None]
  - SKIN DISCOLOURATION [None]
  - OFF LABEL USE [None]
  - METHAEMOGLOBINAEMIA [None]
  - CHROMATURIA [None]
  - HAEMODILUTION [None]
  - SPEECH DISORDER [None]
  - NERVOUS SYSTEM DISORDER [None]
  - SEROTONIN SYNDROME [None]
  - VOMITING [None]
